FAERS Safety Report 18038174 (Version 2)
Quarter: 2020Q3

REPORT INFORMATION
  Report Type: Spontaneous
  Country: US (occurrence: US)
  Receive Date: 20200718
  Receipt Date: 20200805
  Transmission Date: 20201103
  Serious: Yes (Other)
  Sender: FDA-Public Use
  Company Number: US-AUROBINDO-AUR-APL-2020-035214

PATIENT
  Age: 81 Year
  Sex: Male

DRUGS (2)
  1. HYDROMORPHONE [Suspect]
     Active Substance: HYDROMORPHONE
     Indication: PAIN MANAGEMENT
     Dosage: UNK, AS NECESSARY (LOW DOSES)
     Route: 042
  2. ZOLPIDEM [Interacting]
     Active Substance: ZOLPIDEM TARTRATE
     Indication: SLEEP DISORDER
     Dosage: UNK, ONCE A DAY
     Route: 065

REACTIONS (4)
  - Respiratory depression [Unknown]
  - Depressed level of consciousness [Unknown]
  - Toxicity to various agents [Unknown]
  - Drug interaction [Unknown]
